FAERS Safety Report 15147465 (Version 1)
Quarter: 2018Q3

REPORT INFORMATION
  Report Type: Report from Study
  Country: None (occurrence: BR)
  Receive Date: 20180716
  Receipt Date: 20180716
  Transmission Date: 20181010
  Serious: Yes (Hospitalization, Other)
  Sender: FDA-Public Use
  Company Number: BR-ABBVIE-18K-020-2414405-00

PATIENT
  Age: 56 Year
  Sex: Female

DRUGS (1)
  1. HUMIRA [Suspect]
     Active Substance: ADALIMUMAB
     Indication: RHEUMATOID ARTHRITIS
     Route: 058
     Dates: start: 20161129

REACTIONS (9)
  - Pain [Recovered/Resolved]
  - Pneumonia [Not Recovered/Not Resolved]
  - Oral mucosal discolouration [Recovered/Resolved]
  - Pneumonia [Recovered/Resolved]
  - Respiratory disorder [Recovered/Resolved]
  - Malaise [Recovered/Resolved]
  - Renal failure [Not Recovered/Not Resolved]
  - Fatigue [Recovered/Resolved]
  - Visual impairment [Recovered/Resolved]

NARRATIVE: CASE EVENT DATE: 20180528
